FAERS Safety Report 6107873-5 (Version None)
Quarter: 2009Q1

REPORT INFORMATION
  Report Type: 
  Country: None (occurrence: None)
  Receive Date: 20090309
  Receipt Date: 20090226
  Transmission Date: 20090719
  Serious: Yes (Other)
  Sender: FDA-Public Use
  Company Number: PHEH2009US02114

PATIENT

DRUGS (1)
  1. ZELNORM [Suspect]

REACTIONS (2)
  - EMOTIONAL DISTRESS [None]
  - INJURY [None]
